FAERS Safety Report 18285770 (Version 1)
Quarter: 2020Q3

REPORT INFORMATION
  Report Type: Spontaneous
  Country: US (occurrence: US)
  Receive Date: 20200919
  Receipt Date: 20200919
  Transmission Date: 20201103
  Serious: Yes (Other)
  Sender: FDA-Public Use
  Company Number: US-ACCORD-201546

PATIENT
  Age: 68 Year
  Sex: Female

DRUGS (1)
  1. MYCOPHENOLIC ACID. [Suspect]
     Active Substance: MYCOPHENOLIC ACID
     Indication: RETINOPATHY

REACTIONS (3)
  - Hepatic function abnormal [Unknown]
  - Condition aggravated [Unknown]
  - Off label use [Unknown]
